FAERS Safety Report 11239095 (Version 1)
Quarter: 2015Q3

REPORT INFORMATION
  Report Type: Spontaneous
  Country: US (occurrence: US)
  Receive Date: 20150706
  Receipt Date: 20150706
  Transmission Date: 20151125
  Serious: No
  Sender: FDA-Public Use
  Company Number: US-B.I. PHARMACEUTICALS,INC./RIDGEFIELD-2015-BI-33909BP

PATIENT
  Age: 67 Year
  Sex: Female

DRUGS (21)
  1. LISINOPRIL. [Concomitant]
     Active Substance: LISINOPRIL
     Indication: HYPERTENSION
     Dosage: 5 MG
     Route: 048
  2. VITAMIN D [Concomitant]
     Active Substance: CHOLECALCIFEROL
     Indication: SUPPLEMENTATION THERAPY
     Dosage: 10000 U
     Route: 048
  3. EFFEXOR [Concomitant]
     Active Substance: VENLAFAXINE HYDROCHLORIDE
     Indication: DEPRESSION
     Dosage: 150 MG
     Route: 048
     Dates: start: 2013
  4. COMBIVENT RESPIMAT [Concomitant]
     Active Substance: ALBUTEROL SULFATE\IPRATROPIUM BROMIDE
     Indication: CHRONIC OBSTRUCTIVE PULMONARY DISEASE
     Dosage: STRENGTH: 20 MCG/100 MCG; DAILY DOSE: 80 MCG/400 MCG
     Route: 055
     Dates: start: 2013
  5. SPIRIVA [Suspect]
     Active Substance: TIOTROPIUM BROMIDE MONOHYDRATE
     Indication: CHRONIC OBSTRUCTIVE PULMONARY DISEASE
     Dosage: 5 MCG
     Route: 055
     Dates: start: 20150609
  6. METOLAZONE. [Concomitant]
     Active Substance: METOLAZONE
     Indication: FLUID RETENTION
     Dosage: 5 MG
     Route: 048
     Dates: start: 2014
  7. IRON [Concomitant]
     Active Substance: IRON
     Indication: SUPPLEMENTATION THERAPY
     Dosage: 2 ANZ
     Route: 048
  8. OCCUVITE [Concomitant]
     Indication: SUPPLEMENTATION THERAPY
     Dosage: 1 ANZ
     Route: 048
  9. OXYCODONE [Concomitant]
     Active Substance: OXYCODONE
     Indication: OSTEOPOROSIS
     Route: 048
     Dates: start: 2013
  10. VITAMIN B12 [Concomitant]
     Active Substance: CYANOCOBALAMIN
     Indication: SUPPLEMENTATION THERAPY
     Dosage: 2 ANZ
     Route: 048
  11. PRAVASTATIN [Concomitant]
     Active Substance: PRAVASTATIN\PRAVASTATIN SODIUM
     Indication: BLOOD CHOLESTEROL INCREASED
     Dosage: 40 MG
     Route: 048
     Dates: start: 2010
  12. VENTOLIN [Concomitant]
     Active Substance: ALBUTEROL SULFATE
     Indication: CHRONIC OBSTRUCTIVE PULMONARY DISEASE
     Route: 055
     Dates: start: 1985
  13. MAGNESIUM [Concomitant]
     Active Substance: MAGNESIUM
     Indication: SUPPLEMENTATION THERAPY
     Dosage: 2 ANZ
     Route: 048
  14. LORAZEPAM. [Concomitant]
     Active Substance: LORAZEPAM
     Indication: CHRONIC OBSTRUCTIVE PULMONARY DISEASE
     Route: 048
     Dates: start: 1995
  15. FOLIC ACID. [Concomitant]
     Active Substance: FOLIC ACID
     Indication: PRODUCT USED FOR UNKNOWN INDICATION
     Dosage: 1 ANZ
     Route: 048
  16. MORPHINE [Concomitant]
     Active Substance: MORPHINE
     Indication: OSTEOPOROSIS
     Dosage: 90 MG
     Route: 048
     Dates: start: 2011
  17. PREDNISONE. [Concomitant]
     Active Substance: PREDNISONE
     Indication: CHRONIC OBSTRUCTIVE PULMONARY DISEASE
     Route: 048
     Dates: start: 2013
  18. FUROSEMIDE. [Concomitant]
     Active Substance: FUROSEMIDE
     Indication: FLUID RETENTION
     Dosage: 60 MG
     Route: 048
     Dates: start: 2000
  19. CALCIUM [Concomitant]
     Active Substance: CALCIUM
     Indication: SUPPLEMENTATION THERAPY
     Route: 048
  20. ALBUTEROL. [Concomitant]
     Active Substance: ALBUTEROL
     Indication: CHRONIC OBSTRUCTIVE PULMONARY DISEASE
     Route: 055
     Dates: start: 2005
  21. METOPROLOL [Concomitant]
     Active Substance: METOPROLOL
     Indication: HYPERTENSION
     Dosage: 25 MG
     Route: 048

REACTIONS (1)
  - Fluid retention [Unknown]

NARRATIVE: CASE EVENT DATE: 20150616
